FAERS Safety Report 17849309 (Version 1)
Quarter: 2020Q2

REPORT INFORMATION
  Report Type: Spontaneous
  Country: US (occurrence: US)
  Receive Date: 20200601
  Receipt Date: 20200601
  Transmission Date: 20200714
  Serious: Yes (Other)
  Sender: FDA-Public Use
  Company Number: None

PATIENT
  Age: 54 Year
  Sex: Female
  Weight: 114 kg

DRUGS (12)
  1. SODIUM BICARBONATE 50MEQ PUSH [Concomitant]
     Dates: start: 20200531, end: 20200531
  2. REMDESIVIR. [Suspect]
     Active Substance: REMDESIVIR
     Indication: SARS-COV-2 TEST POSITIVE
     Route: 041
     Dates: start: 20200529, end: 20200530
  3. DEXMEDETOMIDINE. [Concomitant]
     Active Substance: DEXMEDETOMIDINE
     Dates: start: 20200528, end: 20200531
  4. FENTANYL. [Concomitant]
     Active Substance: FENTANYL
     Dates: start: 20200528, end: 20200531
  5. PROPOFOL. [Concomitant]
     Active Substance: PROPOFOL
     Dates: start: 20200528, end: 20200531
  6. D5/SODIUM BICARBONATE DRIP [Concomitant]
     Dates: start: 20200531, end: 20200531
  7. METHYLPREDNISOLONE. [Concomitant]
     Active Substance: METHYLPREDNISOLONE
     Dates: start: 20200528, end: 20200531
  8. REGULAR INSULIN [Concomitant]
     Active Substance: INSULIN NOS
     Dates: start: 20200528, end: 20200531
  9. CEFEPIME [Concomitant]
     Active Substance: CEFEPIME HYDROCHLORIDE
     Dates: start: 20200528, end: 20200531
  10. HEPARIN [Concomitant]
     Active Substance: HEPARIN SODIUM
     Dates: start: 20200528
  11. REMDESIVIR. [Suspect]
     Active Substance: REMDESIVIR
     Indication: COVID-19
     Dosage: ?          OTHER FREQUENCY:ONE TIME;?
     Route: 041
     Dates: start: 20200528, end: 20200528
  12. VERSED [Concomitant]
     Active Substance: MIDAZOLAM HYDROCHLORIDE
     Dates: start: 20200528, end: 20200531

REACTIONS (3)
  - Therapy interrupted [None]
  - Blood creatinine increased [None]
  - Renal impairment [None]

NARRATIVE: CASE EVENT DATE: 20200531
